FAERS Safety Report 24153554 (Version 1)
Quarter: 2024Q3

REPORT INFORMATION
  Report Type: Spontaneous
  Country: US (occurrence: None)
  Receive Date: 20240730
  Receipt Date: 20240730
  Transmission Date: 20241017
  Serious: Yes (Other)
  Sender: Public
  Company Number: None

PATIENT
  Age: 38 Year
  Sex: Female
  Weight: 54.8 kg

DRUGS (1)
  1. BRIUMVI [Suspect]
     Active Substance: UBLITUXIMAB-XIIY
     Indication: Multiple sclerosis
     Dates: start: 20240520

REACTIONS (4)
  - Myeloid maturation arrest [None]
  - Fatigue [None]
  - Malaise [None]
  - Neutropenia [None]

NARRATIVE: CASE EVENT DATE: 20240610
